FAERS Safety Report 14696141 (Version 2)
Quarter: 2018Q2

REPORT INFORMATION
  Report Type: Spontaneous
  Country: US (occurrence: US)
  Receive Date: 20180329
  Receipt Date: 20180404
  Transmission Date: 20180711
  Serious: No
  Sender: FDA-Public Use
  Company Number: US-SA-2017SA091069

PATIENT

DRUGS (3)
  1. ALLEGRA ALLERGY [Suspect]
     Active Substance: FEXOFENADINE HYDROCHLORIDE
     Indication: MULTIPLE ALLERGIES
     Route: 065
  2. CLARITIN [Concomitant]
     Active Substance: LORATADINE
     Route: 065
  3. ALLEGRA-D [Suspect]
     Active Substance: FEXOFENADINE\PSEUDOEPHEDRINE
     Indication: MULTIPLE ALLERGIES
     Route: 065

REACTIONS (3)
  - Psychomotor hyperactivity [Unknown]
  - Drug ineffective [Unknown]
  - Somnolence [Unknown]
